FAERS Safety Report 8785089 (Version 2)
Quarter: 2012Q4

REPORT INFORMATION
  Report Type: 
  Country: JP (occurrence: JP)
  Receive Date: 20120914
  Receipt Date: 20120914
  Transmission Date: 20130627
  Serious: Yes (Life-Threatening, Hospitalization)
  Sender: FDA-Public Use
  Company Number: JP-SANOFI-AVENTIS-2012SA057793

PATIENT
  Age: 86 Year
  Sex: Female
  Weight: 41 kg

DRUGS (8)
  1. METOPROLOL [Suspect]
     Indication: DRUG USE FOR UNKNOWN INDICATION
     Route: 048
  2. PREDNISOLONE [Suspect]
     Indication: DRUG USE FOR UNKNOWN INDICATION
     Dosage: morning
     Route: 048
  3. NIFEDIPINE [Suspect]
     Indication: DRUG USE FOR UNKNOWN INDICATION
     Dosage: morning
     Route: 048
  4. ATORVASTATIN [Suspect]
     Indication: DRUG USE FOR UNKNOWN INDICATION
     Dosage: morning
     Route: 048
  5. AMARYL [Suspect]
     Indication: DIABETES
     Dosage: morning
     Route: 048
     Dates: start: 20050910, end: 20081220
  6. VOGLIBOSE [Suspect]
     Indication: DIABETES
     Dosage: before lunch and dinner
     Route: 048
     Dates: start: 20050914, end: 20081220
  7. MESTINON [Suspect]
     Indication: DRUG USE FOR UNKNOWN INDICATION
     Dosage: morning and evening
     Route: 048
  8. ACECLOFENAC [Suspect]
     Indication: DRUG USE FOR UNKNOWN INDICATION
     Dosage: morning
     Route: 048

REACTIONS (3)
  - Hypoglycaemia [Recovering/Resolving]
  - Altered state of consciousness [Recovered/Resolved]
  - Blood potassium decreased [Recovered/Resolved]
